FAERS Safety Report 7951919-6 (Version None)
Quarter: 2011Q4

REPORT INFORMATION
  Report Type: 
  Country: None (occurrence: None)
  Receive Date: 20111201
  Receipt Date: 20111129
  Transmission Date: 20120403
  Serious: Yes (Hospitalization, Other)
  Sender: FDA-Public Use
  Company Number: ES-PFIZER INC-2005146797

PATIENT
  Age: 44 Year
  Sex: Female
  Weight: 88 kg

DRUGS (5)
  1. CAPTOPRIL [Concomitant]
     Route: 065
  2. NOCTAMID [Concomitant]
     Dosage: 1 MG, UNK
     Dates: start: 20050826
  3. EZETIMIBE [Concomitant]
     Dosage: UNK
     Route: 048
     Dates: start: 20050316, end: 20050610
  4. ATORVASTATIN CALCIUM [Suspect]
     Indication: DYSLIPIDAEMIA
     Dosage: 20 MG, 1X/DAY
     Route: 048
     Dates: start: 20041215, end: 20051017
  5. REPAGLINIDE [Concomitant]
     Indication: TYPE 2 DIABETES MELLITUS
     Dosage: 0.5 MG, 3X/DAY
     Route: 048
     Dates: start: 20050316

REACTIONS (10)
  - PARAESTHESIA [None]
  - INTERVERTEBRAL DISC PROTRUSION [None]
  - TACHYCARDIA [None]
  - BACK PAIN [None]
  - FORMICATION [None]
  - MUSCULAR WEAKNESS [None]
  - LIPOMA [None]
  - HEPATIC ENZYME INCREASED [None]
  - HYPERSENSITIVITY [None]
  - MONONEUROPATHY MULTIPLEX [None]
